FAERS Safety Report 7542771-1 (Version None)
Quarter: 2011Q2

REPORT INFORMATION
  Report Type: 
  Country: None (occurrence: None)
  Receive Date: 20110613
  Receipt Date: 20110520
  Transmission Date: 20111010
  Serious: Yes (Other)
  Sender: FDA-Public Use
  Company Number: B0721389A

PATIENT
  Sex: Male

DRUGS (5)
  1. SERETIDE (50MCG/250MCG) [Suspect]
     Indication: CHRONIC OBSTRUCTIVE PULMONARY DISEASE
     Dosage: 500MCG PER DAY
     Route: 055
     Dates: start: 20100401, end: 20110501
  2. SPIRIVA [Concomitant]
     Indication: CHRONIC OBSTRUCTIVE PULMONARY DISEASE
     Route: 055
     Dates: start: 20100401
  3. LOSARTAN POTASSIUM [Concomitant]
     Route: 048
  4. MEPTIN AIR [Concomitant]
     Indication: CHRONIC OBSTRUCTIVE PULMONARY DISEASE
     Route: 055
     Dates: start: 20100401
  5. RABEPRAZOLE SODIUM [Concomitant]
     Route: 048

REACTIONS (1)
  - OESOPHAGEAL CANDIDIASIS [None]
